FAERS Safety Report 9690625 (Version 1)
Quarter: 2013Q4

REPORT INFORMATION
  Report Type: Spontaneous
  Country: US (occurrence: None)
  Receive Date: 20131114
  Receipt Date: 20131114
  Transmission Date: 20140711
  Serious: Yes (Hospitalization)
  Sender: FDA-Public Use
  Company Number: None

PATIENT
  Age: 28 Year
  Sex: Male
  Weight: 75 kg

DRUGS (2)
  1. BACTRIM DS [Suspect]
     Indication: STAPHYLOCOCCAL INFECTION
     Dosage: 1 TABLET, BID, ORAL
     Route: 048
  2. MULTIVITAMIN [Concomitant]

REACTIONS (5)
  - Nausea [None]
  - Vomiting [None]
  - Abdominal pain upper [None]
  - Dehydration [None]
  - Renal tubular necrosis [None]
